FAERS Safety Report 8490583-7 (Version None)
Quarter: 2012Q3

REPORT INFORMATION
  Report Type: 
  Country: None (occurrence: None)
  Receive Date: 20120705
  Receipt Date: 20120627
  Transmission Date: 20120928
  Serious: Yes (Hospitalization, Other)
  Sender: FDA-Public Use
  Company Number: FR-ABBOTT-12P-056-0950500-00

PATIENT
  Sex: Female

DRUGS (8)
  1. MEDIATENSYL [Suspect]
     Indication: HYPERTENSION
     Route: 048
     Dates: end: 20120220
  2. INDAPAMIDE [Suspect]
     Indication: HYPERTENSION
     Route: 048
     Dates: end: 20120218
  3. TARKA [Suspect]
     Indication: HYPERTENSION
     Route: 048
     Dates: end: 20120218
  4. ATRIPLA [Suspect]
     Indication: HIV INFECTION
     Dosage: 600MG/200MG/245MG
     Route: 048
     Dates: end: 20120220
  5. ACTONEL [Suspect]
     Indication: PRODUCT USED FOR UNKNOWN INDICATION
     Route: 048
     Dates: end: 20120220
  6. EZETIMIBE [Concomitant]
     Indication: PRODUCT USED FOR UNKNOWN INDICATION
     Route: 048
  7. IMOVANE [Concomitant]
     Indication: PRODUCT USED FOR UNKNOWN INDICATION
     Route: 048
  8. PLAVIX [Suspect]
     Indication: PRODUCT USED FOR UNKNOWN INDICATION
     Route: 048
     Dates: end: 20120220

REACTIONS (10)
  - RENAL FAILURE ACUTE [None]
  - RENAL TUBULAR DISORDER [None]
  - RENAL PAIN [None]
  - RENAL TUBULAR NECROSIS [None]
  - HYPOALBUMINAEMIA [None]
  - TUBULOINTERSTITIAL NEPHRITIS [None]
  - KETONURIA [None]
  - PROTEINURIA [None]
  - HAEMATURIA [None]
  - HYPOKALAEMIA [None]
